FAERS Safety Report 23515294 (Version 1)
Quarter: 2024Q1

REPORT INFORMATION
  Report Type: Spontaneous
  Country: US (occurrence: US)
  Receive Date: 20240213
  Receipt Date: 20240213
  Transmission Date: 20240409
  Serious: Yes (Death, Other)
  Sender: FDA-Public Use
  Company Number: US-BRISTOL-MYERS SQUIBB COMPANY-2024-022817

PATIENT
  Age: 85 Year
  Sex: Female

DRUGS (1)
  1. LENALIDOMIDE [Suspect]
     Active Substance: LENALIDOMIDE
     Indication: Plasma cell myeloma
     Dosage: TOMAR 1 CAPSULA ENTERA POR VIA ORAL CON AGUA, SIN O CON ALIMENTOS A LA MISMA HORA TODOS LOS DIAS
     Route: 048

REACTIONS (1)
  - Death [Fatal]
